FAERS Safety Report 4837658-9 (Version None)
Quarter: 2005Q4

REPORT INFORMATION
  Report Type: 
  Country: None (occurrence: None)
  Receive Date: 20051128
  Receipt Date: 20050929
  Transmission Date: 20060501
  Serious: Yes (Hospitalization, Other)
  Sender: FDA-Public Use
  Company Number: US-MERCK-0510USA00548

PATIENT
  Age: 54 Year
  Sex: Male
  Weight: 134 kg

DRUGS (19)
  1. NEURONTIN [Concomitant]
     Route: 065
  2. HYDROCODONE BITARTRATE [Concomitant]
     Route: 048
  3. K-DUR 10 [Concomitant]
     Route: 065
  4. ZOLOFT [Concomitant]
     Route: 065
  5. VIOXX [Suspect]
     Indication: SPONDYLITIS
     Route: 048
     Dates: start: 19990101, end: 20040101
  6. SOMA [Concomitant]
     Route: 065
  7. INSULIN [Concomitant]
     Route: 065
  8. HUMULIN [Concomitant]
     Route: 065
  9. PROZAC [Concomitant]
     Route: 065
  10. CELEBREX [Concomitant]
     Route: 065
  11. VICODIN [Concomitant]
     Route: 065
  12. SYNTHROID [Concomitant]
     Route: 065
  13. LOTENSIN [Concomitant]
     Route: 065
  14. ELAVIL [Concomitant]
     Route: 065
  15. ZOCOR [Concomitant]
     Route: 048
  16. PREVACID [Concomitant]
     Route: 065
  17. MAVIK [Concomitant]
     Route: 065
  18. METHADONE HYDROCHLORIDE [Concomitant]
     Route: 065
  19. DIGOXIN [Concomitant]
     Route: 065

REACTIONS (23)
  - ABSCESS [None]
  - ATRIAL FIBRILLATION [None]
  - BACK DISORDER [None]
  - CARDIAC FAILURE CONGESTIVE [None]
  - CARDIOMYOPATHY [None]
  - CHEST PAIN [None]
  - DIABETIC ULCER [None]
  - DYSPNOEA PAROXYSMAL NOCTURNAL [None]
  - FALL [None]
  - FLANK PAIN [None]
  - HAEMATURIA [None]
  - HEADACHE [None]
  - MITRAL VALVE INCOMPETENCE [None]
  - MYOCARDIAL INFARCTION [None]
  - NECK MASS [None]
  - PALPITATIONS [None]
  - PARALYSIS [None]
  - PARAPARESIS [None]
  - PNEUMONITIS [None]
  - PROSTATE EXAMINATION ABNORMAL [None]
  - PYELONEPHRITIS [None]
  - SPINAL COLUMN STENOSIS [None]
  - THROMBOSIS [None]
